FAERS Safety Report 7479247-6 (Version None)
Quarter: 2011Q2

REPORT INFORMATION
  Report Type: 
  Country: None (occurrence: None)
  Receive Date: 20110513
  Receipt Date: 20110428
  Transmission Date: 20111010
  Serious: Yes (Hospitalization)
  Sender: FDA-Public Use
  Company Number: B0718673A

PATIENT
  Age: 41 Year
  Sex: Female
  Weight: 94 kg

DRUGS (11)
  1. PRILOSEC [Concomitant]
     Dosage: 20MG TWICE PER DAY
  2. ZYRTEC [Concomitant]
     Dosage: 10MG PER DAY
  3. FLONASE [Concomitant]
     Dosage: 2SPR PER DAY
  4. LORAZEPAM [Concomitant]
     Dosage: .5MG THREE TIMES PER DAY
  5. SINGULAIR [Concomitant]
     Dosage: 10MG PER DAY
  6. MEDROL [Concomitant]
  7. XOPENEX [Concomitant]
     Dosage: 2PUFF FOUR TIMES PER DAY
  8. SELZENTRY [Suspect]
     Dosage: 300MG TWICE PER DAY
     Route: 048
     Dates: start: 20110224, end: 20110401
  9. ALBUTEROL [Concomitant]
     Dosage: 2PUFF PER DAY
     Route: 055
  10. FERROUS SULFATE TAB [Concomitant]
     Dosage: 325MG TWICE PER DAY
  11. SYMBICORT [Concomitant]
     Dosage: 2PUFF TWICE PER DAY

REACTIONS (2)
  - GASTROOESOPHAGEAL REFLUX DISEASE [None]
  - RHINITIS ALLERGIC [None]
